FAERS Safety Report 24917968 (Version 1)
Quarter: 2025Q1

REPORT INFORMATION
  Report Type: Spontaneous
  Country: TR (occurrence: TR)
  Receive Date: 20250203
  Receipt Date: 20250203
  Transmission Date: 20250409
  Serious: Yes (Life-Threatening, Hospitalization)
  Sender: MYLAN
  Company Number: TR-MYLANLABS-2025M1009344

PATIENT
  Age: 76 Year
  Sex: Female

DRUGS (13)
  1. ATORVASTATIN [Suspect]
     Active Substance: ATORVASTATIN
     Indication: Angina unstable
     Route: 065
  2. ATORVASTATIN [Suspect]
     Active Substance: ATORVASTATIN
     Indication: Acute coronary syndrome
  3. AMLODIPINE [Suspect]
     Active Substance: AMLODIPINE BESYLATE
     Indication: Angina unstable
     Dosage: 5 MILLIGRAM, QD
     Route: 065
  4. AMLODIPINE [Suspect]
     Active Substance: AMLODIPINE BESYLATE
     Indication: Acute coronary syndrome
  5. ASPIRIN [Suspect]
     Active Substance: ASPIRIN
     Indication: Angina unstable
     Route: 065
  6. ASPIRIN [Suspect]
     Active Substance: ASPIRIN
     Indication: Acute coronary syndrome
  7. METOPROLOL [Suspect]
     Active Substance: METOPROLOL
     Indication: Angina unstable
     Dosage: 50 MILLIGRAM, QD
     Route: 065
  8. METOPROLOL [Suspect]
     Active Substance: METOPROLOL
     Indication: Acute coronary syndrome
  9. RANOLAZINE [Suspect]
     Active Substance: RANOLAZINE
     Indication: Angina unstable
     Dosage: 500 MILLIGRAM, BID
     Route: 065
  10. RANOLAZINE [Suspect]
     Active Substance: RANOLAZINE
     Indication: Acute coronary syndrome
  11. ISOSORBIDE MONONITRATE [Suspect]
     Active Substance: ISOSORBIDE MONONITRATE
     Indication: Angina unstable
     Route: 065
  12. ISOSORBIDE MONONITRATE [Suspect]
     Active Substance: ISOSORBIDE MONONITRATE
     Indication: Acute coronary syndrome
  13. INSULIN NOS [Concomitant]
     Active Substance: INSULIN NOS
     Indication: Diabetes mellitus
     Route: 065

REACTIONS (1)
  - Therapy non-responder [Unknown]
